FAERS Safety Report 13746057 (Version 1)
Quarter: 2017Q3

REPORT INFORMATION
  Report Type: Spontaneous
  Country: US (occurrence: US)
  Receive Date: 20170712
  Receipt Date: 20170712
  Transmission Date: 20171127
  Serious: No
  Sender: FDA-Public Use
  Company Number: US-BAYER-2017-132831

PATIENT
  Age: 22 Year
  Sex: Female

DRUGS (1)
  1. MIRENA [Suspect]
     Active Substance: LEVONORGESTREL
     Indication: PREMENSTRUAL DYSPHORIC DISORDER
     Dosage: 20 MCG/24HR, CONT
     Route: 015
     Dates: start: 201611, end: 20170608

REACTIONS (7)
  - Anxiety [None]
  - Depression [None]
  - Vomiting [None]
  - Breast pain [None]
  - Eating disorder [None]
  - Off label use of device [None]
  - Product use in unapproved indication [None]

NARRATIVE: CASE EVENT DATE: 201611
